FAERS Safety Report 7088029-9 (Version None)
Quarter: 2010Q4

REPORT INFORMATION
  Report Type: 
  Country: None (occurrence: None)
  Receive Date: 20101005
  Receipt Date: 20100921
  Transmission Date: 20110411
  Serious: Yes (Other)
  Sender: FDA-Public Use
  Company Number: 2010-00812

PATIENT
  Age: 26 Year
  Sex: Male
  Weight: 90.7194 kg

DRUGS (3)
  1. ZICAM COLD REMEDY PLUS LIQUI-LOZ [Suspect]
     Indication: OROPHARYNGEAL PAIN
     Dosage: 1 DOSE
     Dates: start: 20100920
  2. ALBUTEROL [Concomitant]
  3. SYMBICORT [Concomitant]

REACTIONS (2)
  - ASTHMA [None]
  - HYPERSENSITIVITY [None]
